FAERS Safety Report 4881963-7 (Version None)
Quarter: 2006Q1

REPORT INFORMATION
  Report Type: 
  Country: None (occurrence: None)
  Receive Date: 20060117
  Receipt Date: 20060105
  Transmission Date: 20060701
  Serious: Yes (Hospitalization)
  Sender: FDA-Public Use
  Company Number: FR-GLAXOSMITHKLINE-B0405795A

PATIENT
  Age: 40 Year
  Sex: Male

DRUGS (3)
  1. ZELITREX [Suspect]
     Route: 048
     Dates: start: 20050815, end: 20051102
  2. TEGRETOL [Suspect]
     Route: 048
     Dates: start: 20050923, end: 20051102
  3. VIDORA [Suspect]
     Route: 048
     Dates: start: 20051010, end: 20051102

REACTIONS (11)
  - BURNING SENSATION [None]
  - DERMATITIS EXFOLIATIVE [None]
  - DRUG RASH WITH EOSINOPHILIA AND SYSTEMIC SYMPTOMS [None]
  - ENANTHEMA [None]
  - EOSINOPHILIA [None]
  - HEPATIC FAILURE [None]
  - LYMPHADENOPATHY [None]
  - PARAESTHESIA [None]
  - PURPURA [None]
  - RASH [None]
  - SKIN EXFOLIATION [None]
